FAERS Safety Report 4833755-2 (Version None)
Quarter: 2005Q4

REPORT INFORMATION
  Report Type: 
  Country: None (occurrence: None)
  Receive Date: 20051116
  Receipt Date: 20051116
  Transmission Date: 20060501
  Serious: Yes (Hospitalization, Other)
  Sender: FDA-Public Use
  Company Number: None

PATIENT
  Sex: Male
  Weight: 82.5 kg

DRUGS (3)
  1. CYTARABINE [Suspect]
     Indication: ACUTE MYELOID LEUKAEMIA
     Dosage: SEE IMAGE
     Route: 042
     Dates: start: 20051027
  2. DAUNOMYCIN [Suspect]
     Dosage: SEE IMAGE
     Route: 042
     Dates: start: 20051027
  3. VP-16 [Suspect]
     Dosage: SEE IMAGE
     Route: 042
     Dates: start: 20051027

REACTIONS (7)
  - ATRIAL FIBRILLATION [None]
  - CHEST X-RAY ABNORMAL [None]
  - DIALYSIS [None]
  - HYPOXIA [None]
  - INFECTION [None]
  - PYREXIA [None]
  - RENAL FAILURE ACUTE [None]
